FAERS Safety Report 14689866 (Version 1)
Quarter: 2018Q1

REPORT INFORMATION
  Report Type: Spontaneous
  Country: US (occurrence: US)
  Receive Date: 20180328
  Receipt Date: 20180328
  Transmission Date: 20180509
  Serious: No
  Sender: FDA-Public Use
  Company Number: US-SMITH AND NEPHEW, INC-2017SMT00588

PATIENT
  Sex: Male

DRUGS (1)
  1. COLLAGENASE SANTYL [Suspect]
     Active Substance: COLLAGENASE CLOSTRIDIUM HISTOLYTICUM
     Indication: WOUND
     Dosage: 1 DOSAGE UNITS, 1X/DAY; APPLY A NICKEL THICKNESS TO THE AFFECTED AREA ONE TIME DAILY
     Route: 061
     Dates: start: 201711

REACTIONS (2)
  - Wound complication [Unknown]
  - Wound [Unknown]

NARRATIVE: CASE EVENT DATE: 2017
